FAERS Safety Report 5795719-4 (Version None)
Quarter: 2008Q2

REPORT INFORMATION
  Report Type: 
  Country: None (occurrence: None)
  Receive Date: 20080630
  Receipt Date: 20080624
  Transmission Date: 20081010
  Serious: Yes (Other)
  Sender: FDA-Public Use
  Company Number: JP-BOEHRINGER INGELHEIM GMBH, GERMANY-2008-BP-08228NB

PATIENT
  Sex: Male
  Weight: 60 kg

DRUGS (8)
  1. SPIRIVA [Suspect]
     Indication: EMPHYSEMA
     Route: 055
     Dates: start: 20050822, end: 20080514
  2. HARNAL (TAMSULOSIN) CAPSULE, 0.1 MG [Suspect]
     Indication: BENIGN PROSTATIC HYPERPLASIA
     Route: 048
     Dates: start: 20021005
  3. HARNAL (TAMSULOSIN) ORODISPERSIBLE CR TABLET, UNKNOWN [Suspect]
     Indication: BENIGN PROSTATIC HYPERPLASIA
     Route: 048
  4. ATELEC [Concomitant]
     Indication: HYPERTENSION
     Route: 048
     Dates: start: 20060101
  5. BUFFERIN [Concomitant]
     Indication: ATRIAL FIBRILLATION
     Route: 048
     Dates: start: 20021005
  6. DIOVAN [Concomitant]
     Indication: HYPERTENSION
     Route: 048
     Dates: start: 20030301
  7. PROSTAL [Concomitant]
     Indication: BENIGN PROSTATIC HYPERPLASIA
     Route: 048
     Dates: start: 20020801
  8. NITRODERM [Concomitant]

REACTIONS (3)
  - BLINDNESS UNILATERAL [None]
  - GLAUCOMA [None]
  - INTRAOCULAR PRESSURE INCREASED [None]
